FAERS Safety Report 8138408-3 (Version None)
Quarter: 2012Q1

REPORT INFORMATION
  Report Type: 
  Country: None (occurrence: None)
  Receive Date: 20120215
  Receipt Date: 20120212
  Transmission Date: 20120608
  Serious: Yes (Hospitalization, Other)
  Sender: FDA-Public Use
  Company Number: IT-BAYER-200912008GPV

PATIENT
  Age: 18 Year
  Sex: Female
  Weight: 44.5 kg

DRUGS (6)
  1. LANSOPRAZOLE [Concomitant]
     Indication: PROPHYLAXIS
     Dosage: DAILY DOSE 30 MG
     Route: 048
     Dates: start: 20090126
  2. AMITRIPTYLINE HCL [Concomitant]
     Indication: PAIN
     Dosage: DAILY DOSE 24 GTT
     Route: 048
     Dates: start: 20090126
  3. MORPHINE [Concomitant]
     Indication: PAIN
     Route: 058
     Dates: start: 20090126
  4. SORAFENIB (RAF KINASE INHIBITOR) [Suspect]
     Indication: BONE SARCOMA
     Route: 048
     Dates: start: 20081016, end: 20090103
  5. SORAFENIB (RAF KINASE INHIBITOR) [Suspect]
     Dosage: RESTARTED
     Dates: start: 20090101
  6. GABAPENTIN [Concomitant]
     Indication: PAIN
     Dosage: DAILY DOSE 600 MG
     Route: 048
     Dates: start: 20090126

REACTIONS (3)
  - PNEUMOTHORAX [None]
  - NECROSIS [None]
  - BRONCHOPLEURAL FISTULA [None]
